FAERS Safety Report 6646811-3 (Version None)
Quarter: 2010Q1

REPORT INFORMATION
  Report Type: 
  Country: None (occurrence: None)
  Receive Date: 20100317
  Receipt Date: 20100304
  Transmission Date: 20100710
  Serious: Yes (Hospitalization)
  Sender: FDA-Public Use
  Company Number: 004713

PATIENT
  Sex: Female
  Weight: 60 kg

DRUGS (27)
  1. CERTOLIZUMAB PEGOL [Suspect]
     Indication: RHEUMATOID ARTHRITIS
     Dosage: (200 MG 1X/2 WEEKS SUBCUTANEOUS)
     Route: 058
     Dates: start: 20091207, end: 20100304
  2. PREDNISONE TAB [Concomitant]
  3. FOLIC ACID [Concomitant]
  4. ZOLOFT [Concomitant]
  5. LEXAPRO [Concomitant]
  6. CALCIUM CARBONATE W/VITAMIN D /00944021/ [Concomitant]
  7. INEXIUM /01479302/ [Concomitant]
  8. PEPCID [Concomitant]
  9. ASPIRIN [Concomitant]
  10. METOPROLOL SUCCINATE [Concomitant]
  11. PHENERGAN HCL [Concomitant]
  12. IZOFRAN /00955301/ [Concomitant]
  13. AMITRIPTYLINE HCL [Concomitant]
  14. LORTAB [Concomitant]
  15. TORADOL [Concomitant]
  16. FENTANYL CITRATE [Concomitant]
  17. NORCO [Concomitant]
  18. ALBUTEROL [Concomitant]
  19. MUCINEX [Concomitant]
  20. LEVAQUIN [Concomitant]
  21. ROCEPHIN [Concomitant]
  22. VERSED [Concomitant]
  23. DEXAMETHASONE [Concomitant]
  24. BUSPIRONE HCL [Concomitant]
  25. CARDIZEM [Concomitant]
  26. MACROBID [Concomitant]
  27. MECLIZINE /00072801/ [Concomitant]

REACTIONS (43)
  - ASPIRATION [None]
  - BACTERIAL TEST POSITIVE [None]
  - BRONCHIAL CARCINOMA [None]
  - BRONCHIECTASIS [None]
  - BRONCHIOLITIS [None]
  - BRONCHITIS [None]
  - CLOSTRIDIAL INFECTION [None]
  - CLOSTRIDIUM TEST POSITIVE [None]
  - COLITIS [None]
  - DIZZINESS [None]
  - DRUG HYPERSENSITIVITY [None]
  - DYSPNOEA [None]
  - ELECTROCARDIOGRAM ST SEGMENT ABNORMAL [None]
  - FATIGUE [None]
  - GASTRITIS [None]
  - HAEMATOCRIT DECREASED [None]
  - HAEMOGLOBIN DECREASED [None]
  - HEADACHE [None]
  - HEART INJURY [None]
  - HEART RATE INCREASED [None]
  - HYPOVOLAEMIA [None]
  - IMPAIRED GASTRIC EMPTYING [None]
  - LEFT VENTRICULAR HYPERTROPHY [None]
  - LEUKOCYTOSIS [None]
  - LOBAR PNEUMONIA [None]
  - LUNG DISORDER [None]
  - MITRAL VALVE CALCIFICATION [None]
  - MITRAL VALVE INCOMPETENCE [None]
  - NAUSEA [None]
  - OXYGEN SATURATION DECREASED [None]
  - PALPITATIONS [None]
  - PLATELET COUNT INCREASED [None]
  - PLEURAL EFFUSION [None]
  - PNEUMONIA [None]
  - PYREXIA [None]
  - RIB FRACTURE [None]
  - SUPRAVENTRICULAR TACHYCARDIA [None]
  - SYNCOPE [None]
  - TACHYCARDIA [None]
  - TRICUSPID VALVE INCOMPETENCE [None]
  - URINARY TRACT INFECTION [None]
  - VENTRICULAR EXTRASYSTOLES [None]
  - VULVOVAGINAL CANDIDIASIS [None]
